FAERS Safety Report 15715672 (Version 1)
Quarter: 2018Q4

REPORT INFORMATION
  Report Type: Spontaneous
  Country: US (occurrence: US)
  Receive Date: 20181212
  Receipt Date: 20181212
  Transmission Date: 20190205
  Serious: No
  Sender: FDA-Public Use
  Company Number: US-AQUA PHARMACEUTICALS-2018AQU000376

PATIENT
  Sex: Female

DRUGS (2)
  1. ACZONE [Suspect]
     Active Substance: DAPSONE
     Indication: ACNE
     Dosage: UNK, QPM
     Route: 061
     Dates: start: 201807, end: 201808
  2. BIRTH CONTROL UNSPECIFIED [Concomitant]
     Indication: ACNE
     Dosage: UNK

REACTIONS (3)
  - Product dispensing error [Unknown]
  - Acne [Unknown]
  - Product dose omission [Unknown]

NARRATIVE: CASE EVENT DATE: 2018
